FAERS Safety Report 11660445 (Version 6)
Quarter: 2018Q4

REPORT INFORMATION
  Report Type: Spontaneous
  Country: US (occurrence: US)
  Receive Date: 20151026
  Receipt Date: 20181128
  Transmission Date: 20190204
  Serious: Yes (Death, Hospitalization)
  Sender: FDA-Public Use
  Company Number: US-ACTELION PHARMACEUTICALS US, INC.-A-NJ2015-122099

PATIENT
  Age: 74 Year
  Sex: Female
  Weight: 65.76 kg

DRUGS (2)
  1. OPSUMIT [Suspect]
     Active Substance: MACITENTAN
     Indication: PULMONARY HYPERTENSION
     Dosage: 10 MG, QD
     Route: 048
     Dates: start: 20150705, end: 20180831
  2. REVATIO [Concomitant]
     Active Substance: SILDENAFIL CITRATE

REACTIONS (16)
  - Carbon dioxide abnormal [Unknown]
  - Feeding disorder [Not Recovered/Not Resolved]
  - Infection [Unknown]
  - Productive cough [Recovered/Resolved with Sequelae]
  - Dyspnoea [Recovered/Resolved with Sequelae]
  - Wheezing [Recovering/Resolving]
  - Pneumonia [Recovered/Resolved with Sequelae]
  - Lethargy [Unknown]
  - Chronic obstructive pulmonary disease [Fatal]
  - Fatigue [Not Recovered/Not Resolved]
  - Oxygen saturation decreased [Not Recovered/Not Resolved]
  - Sinus congestion [Unknown]
  - Asthenia [Not Recovered/Not Resolved]
  - Sputum discoloured [Recovered/Resolved with Sequelae]
  - Condition aggravated [Recovered/Resolved with Sequelae]
  - Nasal congestion [Unknown]

NARRATIVE: CASE EVENT DATE: 20160601
